FAERS Safety Report 4271623-8 (Version None)
Quarter: 2004Q1

REPORT INFORMATION
  Report Type: 
  Country: None (occurrence: None)
  Receive Date: 20040113
  Receipt Date: 20040105
  Transmission Date: 20041129
  Serious: Yes (Life-Threatening)
  Sender: FDA-Public Use
  Company Number: 7018

PATIENT
  Age: 66 Year
  Sex: Female

DRUGS (2)
  1. ERYTHROMYCIN [Suspect]
     Indication: LOWER RESPIRATORY TRACT INFECTION
     Dosage: 500 MG QID
     Route: 048
     Dates: start: 20031215, end: 20031218
  2. OMEPRAZOLE [Concomitant]

REACTIONS (2)
  - DISEASE RECURRENCE [None]
  - SUPRAVENTRICULAR TACHYCARDIA [None]
